FAERS Safety Report 8025692 (Version 2)
Quarter: 2012Q4

REPORT INFORMATION
  Report Type: 
  Country: US (occurrence: US)
  Receive Date: 20110707
  Receipt Date: 20121129
  Transmission Date: 20130627
  Serious: Yes (Other)
  Sender: FDA-Public Use
  Company Number: US-ASTRAZENECA-2010SE55231

PATIENT
  Age: 51 Year
  Sex: Male

DRUGS (4)
  1. TOPROL XL [Suspect]
     Indication: HYPERTENSION
     Dosage: TOTAL DAILY DOSE 50 MG, FREQUENCY TWO TIMES A DAY
     Route: 048
  2. TOPROL XL [Suspect]
     Indication: HYPERTENSION
     Dosage: TOTAL DAILY DOSE 100 MG, FREQUENCY TWO TIMES A DAY
     Route: 048
     Dates: start: 2009
  3. TOPROL XL [Suspect]
     Indication: HYPERTENSION
     Route: 048
  4. TOPROL XL [Suspect]
     Indication: HYPERTENSION
     Route: 048

REACTIONS (7)
  - Cerebrovascular accident [Unknown]
  - Hypertension [Recovered/Resolved]
  - Weight decreased [Unknown]
  - Somnolence [Recovered/Resolved]
  - Anxiety [Unknown]
  - Drug effect decreased [Unknown]
  - Drug ineffective [Unknown]
